FAERS Safety Report 6308092-X (Version None)
Quarter: 2009Q3

REPORT INFORMATION
  Report Type: 
  Country: None (occurrence: None)
  Receive Date: 20090813
  Receipt Date: 20090803
  Transmission Date: 20100115
  Serious: Yes (Hospitalization, Disabling, Other)
  Sender: FDA-Public Use
  Company Number: JP-ABBOTT-09P-087-0588955-00

PATIENT
  Age: 57 Year
  Sex: Male
  Weight: 73 kg

DRUGS (9)
  1. NORVIR [Suspect]
     Indication: HIV INFECTION
     Dosage: DAILY
     Route: 048
     Dates: start: 20070401, end: 20081117
  2. REYATAZ [Concomitant]
     Indication: HIV INFECTION
     Dosage: DAILY
     Route: 048
     Dates: start: 20070401, end: 20081117
  3. EPZICOM [Concomitant]
     Indication: HIV INFECTION
     Dosage: DAILY
     Route: 048
     Dates: start: 20070401, end: 20081117
  4. KALETRA [Concomitant]
     Indication: HIV INFECTION
     Dosage: DAILY
     Route: 048
     Dates: start: 20081118
  5. EPIVIR [Concomitant]
     Indication: HIV INFECTION
     Route: 048
     Dates: start: 20081118
  6. RETROVIR [Concomitant]
     Indication: HIV INFECTION
     Dosage: DAILY
     Route: 048
     Dates: start: 20081118
  7. PRAVASTATIN SODIUM [Concomitant]
     Indication: HYPERLIPIDAEMIA
     Dates: start: 20080205, end: 20080609
  8. ATORVASTATIN CALCIUM HYDRATE [Concomitant]
     Indication: HYPERLIPIDAEMIA
     Dates: start: 20080610, end: 20090202
  9. BEZAFIBRATE [Concomitant]
     Indication: HYPERLIPIDAEMIA
     Dates: start: 20090203

REACTIONS (1)
  - AIDS ENCEPHALOPATHY [None]
